FAERS Safety Report 17045440 (Version 1)
Quarter: 2019Q4

REPORT INFORMATION
  Report Type: Spontaneous
  Country: CH (occurrence: CH)
  Receive Date: 20191118
  Receipt Date: 20191118
  Transmission Date: 20200122
  Serious: Yes (Other)
  Sender: FDA-Public Use
  Company Number: CH-JNJFOC-20191106732

PATIENT
  Age: 18 Year
  Sex: Female

DRUGS (24)
  1. RISPERDAL [Concomitant]
     Active Substance: RISPERIDONE
     Dosage: 2 TO 3 MG/DAY
     Dates: start: 2016, end: 2018
  2. DEPAKINE CHRONO [Concomitant]
     Active Substance: VALPROATE SODIUM
     Indication: DRUG THERAPY
     Dates: start: 2018
  3. RISPERDAL CONSTA [Suspect]
     Active Substance: RISPERIDONE
     Indication: PRODUCT USED FOR UNKNOWN INDICATION
     Route: 030
     Dates: start: 2018, end: 2018
  4. SEROQUEL [Concomitant]
     Active Substance: QUETIAPINE FUMARATE
     Dates: end: 2016
  5. DALMADORM [Concomitant]
     Active Substance: FLURAZEPAM HYDROCHLORIDE
     Dosage: AS NECESSARY
  6. ABILIFY [Concomitant]
     Active Substance: ARIPIPRAZOLE
     Dates: start: 201905, end: 20190623
  7. BUSCOPAN [Concomitant]
     Active Substance: BUTYLSCOPOLAMINE BROMIDE
     Dosage: AS NECESSARY
  8. INVEGA [Suspect]
     Active Substance: PALIPERIDONE
     Indication: PRODUCT USED FOR UNKNOWN INDICATION
     Route: 048
     Dates: start: 20190624, end: 20190903
  9. LAMICTAL [Concomitant]
     Active Substance: LAMOTRIGINE
     Indication: EPILEPSY
     Dates: end: 2013
  10. HALDOL [Suspect]
     Active Substance: HALOPERIDOL
     Indication: PRODUCT USED FOR UNKNOWN INDICATION
     Dosage: AS NECESSARY
     Route: 048
     Dates: start: 201909, end: 201909
  11. AKINETON [Concomitant]
     Active Substance: BIPERIDEN HYDROCHLORIDE
     Dosage: AS NECESSARY
  12. LAXOBERON [Concomitant]
     Active Substance: SODIUM PICOSULFATE
     Dosage: AS NECESSARY
  13. TRANXILIUM [Concomitant]
     Active Substance: CLORAZEPATE DIPOTASSIUM
  14. NICOTINELL [Concomitant]
     Active Substance: NICOTINE
  15. ENTUMINE [Concomitant]
     Active Substance: CLOTHIAPINE
     Dosage: AS NECESSARY
  16. DAFALGAN [Concomitant]
     Active Substance: ACETAMINOPHEN
     Dosage: AS NECESSARY
  17. LATUDA [Concomitant]
     Active Substance: LURASIDONE HYDROCHLORIDE
     Dates: start: 20190830
  18. LUVIT D3 [Concomitant]
     Active Substance: CHOLECALCIFEROL
  19. IRFEN [Concomitant]
     Active Substance: IBUPROFEN
     Dosage: AS NECESSARY
  20. RISPERDAL CONSTA [Suspect]
     Active Substance: RISPERIDONE
     Route: 030
     Dates: start: 2018, end: 201905
  21. HALDOL [Suspect]
     Active Substance: HALOPERIDOL
     Route: 048
     Dates: start: 201910
  22. DEPAKINE CHRONO [Concomitant]
     Active Substance: VALPROATE SODIUM
     Dates: start: 2018
  23. ABILIFY [Concomitant]
     Active Substance: ARIPIPRAZOLE
     Dates: start: 2018, end: 2018
  24. PURSANA [Concomitant]
     Active Substance: FIG FRUIT OIL\SORBITOL
     Dosage: AS NECESSARY

REACTIONS (7)
  - Hyperprolactinaemia [Recovering/Resolving]
  - Hyperprolactinaemia [Recovering/Resolving]
  - Muscle rigidity [Not Recovered/Not Resolved]
  - Salivary hypersecretion [Recovered/Resolved]
  - Dysarthria [Not Recovered/Not Resolved]
  - Galactorrhoea [Unknown]
  - Dysarthria [Recovered/Resolved]

NARRATIVE: CASE EVENT DATE: 2018
